FAERS Safety Report 5129238-5 (Version None)
Quarter: 2006Q4

REPORT INFORMATION
  Report Type: 
  Country: None (occurrence: None)
  Receive Date: 20061012
  Receipt Date: 20060821
  Transmission Date: 20070319
  Serious: Yes (Hospitalization)
  Sender: FDA-Public Use
  Company Number: 2006SP000916

PATIENT
  Age: 46 Year
  Sex: Male
  Weight: 67.1324 kg

DRUGS (11)
  1. PEG-INTRON [Suspect]
     Indication: HEPATITIS C
     Dosage: QW; SC
     Route: 058
     Dates: start: 20060123
  2. REBETOL [Suspect]
     Indication: HEPATITIS C
     Dosage: 1000 MG; QD; PO
     Route: 048
     Dates: start: 20060123
  3. IBUPROFEN [Concomitant]
  4. ALEVE [Concomitant]
  5. ZANTAC [Concomitant]
  6. AMBIEN [Concomitant]
  7. TYLENOL [Concomitant]
  8. PAXIL [Concomitant]
  9. PEPTO-BISMOL [Concomitant]
  10. ZOLOFT [Concomitant]
  11. VITAMIN CAP [Concomitant]

REACTIONS (10)
  - ABDOMINAL PAIN [None]
  - CONDITION AGGRAVATED [None]
  - DECREASED APPETITE [None]
  - DIARRHOEA HAEMORRHAGIC [None]
  - DIVERTICULUM [None]
  - DRUG DOSE OMISSION [None]
  - GASTROOESOPHAGEAL REFLUX DISEASE [None]
  - HAEMORRHOIDS [None]
  - NAUSEA [None]
  - THROMBOCYTOPENIA [None]
